FAERS Safety Report 9263621 (Version 1)
Quarter: 2013Q2

REPORT INFORMATION
  Report Type: Spontaneous
  Country: None (occurrence: US)
  Receive Date: 20130430
  Receipt Date: 20130430
  Transmission Date: 20140414
  Serious: No
  Sender: FDA-Public Use
  Company Number: US-COVIDIEN/TYCO HEALTHCARE/MALLINCKRODT-T201204291

PATIENT
  Age: 57 Year
  Sex: Male

DRUGS (1)
  1. METHYLIN EXTENDED-RELEASE [Suspect]
     Dosage: 20 MG, TID
     Route: 048

REACTIONS (3)
  - Disturbance in attention [Recovered/Resolved]
  - Somnolence [Recovered/Resolved]
  - Paradoxical drug reaction [Unknown]
